FAERS Safety Report 10444064 (Version 1)
Quarter: 2014Q3

REPORT INFORMATION
  Report Type: Spontaneous
  Country: US (occurrence: None)
  Receive Date: 20140908
  Receipt Date: 20140908
  Transmission Date: 20150326
  Serious: Yes (Hospitalization, Other)
  Sender: FDA-Public Use
  Company Number: ADR-2014-01377

PATIENT
  Age: 57 Year
  Sex: Female
  Weight: 122 kg

DRUGS (3)
  1. LIORESAL [Suspect]
     Active Substance: BACLOFEN
     Indication: MUSCLE SPASTICITY
     Dosage: 100 MCG/DAY
  2. LYRICA [Suspect]
     Active Substance: PREGABALIN
  3. CLONAZEPAM ACE INHIBITORS [Suspect]
     Active Substance: CLONAZEPAM

REACTIONS (26)
  - Headache [None]
  - Device malfunction [None]
  - Pneumonitis [None]
  - Bronchitis [None]
  - Muscle spasticity [None]
  - Pain [None]
  - Musculoskeletal stiffness [None]
  - Pyrexia [None]
  - Toxic encephalopathy [None]
  - Blood creatine phosphokinase increased [None]
  - Mental status changes [None]
  - Drug clearance decreased [None]
  - Underdose [None]
  - Rebound effect [None]
  - Drug withdrawal syndrome [None]
  - Unresponsive to stimuli [None]
  - Pruritus [None]
  - Vomiting [None]
  - Gait disturbance [None]
  - Nausea [None]
  - Device dislocation [None]
  - Muscle rigidity [None]
  - Device occlusion [None]
  - Dizziness [None]
  - Mobility decreased [None]
  - Renal failure acute [None]
